FAERS Safety Report 6118871-X (Version None)
Quarter: 2009Q1

REPORT INFORMATION
  Report Type: 
  Country: None (occurrence: None)
  Receive Date: 20090316
  Receipt Date: 20090306
  Transmission Date: 20090719
  Serious: Yes (Hospitalization)
  Sender: FDA-Public Use
  Company Number: PHHO2009DE03248

PATIENT
  Sex: Male

DRUGS (6)
  1. MYFORTIC [Suspect]
     Indication: RENAL TRANSPLANT
     Dosage: 1080 MG DAILY
     Route: 048
     Dates: start: 20071114, end: 20081103
  2. PANTOZOL [Suspect]
     Dosage: 40 MG, QD
     Route: 048
     Dates: start: 20051205, end: 20081113
  3. NO TREATMENT RECEIVED NOMED [Suspect]
     Indication: RENAL TRANSPLANT
     Dosage: UNK
  4. PROGRAF [Suspect]
     Indication: RENAL TRANSPLANT
     Dosage: 3 MG DAILY
     Route: 048
  5. ALLOPURINOL [Suspect]
     Indication: HYPERURICAEMIA
     Dosage: 100 MG, QD
     Route: 048
     Dates: start: 20051011, end: 20081113
  6. FOSAMAX [Suspect]
     Dosage: 70 MG, QW
     Route: 048
     Dates: start: 20080514

REACTIONS (2)
  - BONE MARROW FAILURE [None]
  - LEUKOPENIA [None]
